FAERS Safety Report 5168914-5 (Version None)
Quarter: 2006Q4

REPORT INFORMATION
  Report Type: 
  Country: None (occurrence: None)
  Receive Date: 20061211
  Receipt Date: 20061127
  Transmission Date: 20070319
  Serious: Yes (Disabling)
  Sender: FDA-Public Use
  Company Number: PHRM2006FR03172

PATIENT
  Age: 81 Year
  Sex: Female

DRUGS (7)
  1. ZOMETA [Suspect]
     Indication: MULTIPLE MYELOMA
     Dosage: 4 MG, TIW
     Route: 042
     Dates: start: 20040802, end: 20060306
  2. NEORECORMON ^ROCHE^ [Suspect]
     Indication: ANAEMIA
     Route: 058
  3. DECTANCYL [Suspect]
     Route: 048
  4. THALIDOMIDE [Suspect]
     Indication: MULTIPLE MYELOMA
     Dosage: 100 MG, QD
     Route: 048
     Dates: start: 20040927, end: 20051017
  5. ANTICOAGULANTS [Concomitant]
     Route: 048
  6. DAFALGAN [Concomitant]
  7. LANSOYL [Concomitant]
     Route: 048

REACTIONS (6)
  - DENTAL CARE [None]
  - GINGIVITIS [None]
  - IMPAIRED HEALING [None]
  - OSTEONECROSIS [None]
  - PERIODONTAL DISEASE [None]
  - TOOTH EXTRACTION [None]
